FAERS Safety Report 5067026-9 (Version None)
Quarter: 2006Q3

REPORT INFORMATION
  Report Type: 
  Country: None (occurrence: None)
  Receive Date: 20060713
  Receipt Date: 20060327
  Transmission Date: 20061208
  Serious: Yes (Other)
  Sender: FDA-Public Use
  Company Number: 250199

PATIENT
  Age: 55 Year
  Sex: Female

DRUGS (2)
  1. ACTIVELLA [Suspect]
     Indication: HORMONE REPLACEMENT THERAPY
     Dates: start: 20030208, end: 20031124
  2. PREMPRO [Suspect]

REACTIONS (1)
  - BREAST CANCER [None]
